FAERS Safety Report 9916948 (Version 4)
Quarter: 2014Q2

REPORT INFORMATION
  Report Type: Report from Study
  Country: ES (occurrence: ES)
  Receive Date: 20140221
  Receipt Date: 20140416
  Transmission Date: 20141212
  Serious: Yes (Hospitalization)
  Sender: FDA-Public Use
  Company Number: ES-EXELIXIS-XL18414003846

PATIENT
  Age: 55 Year
  Sex: Male

DRUGS (10)
  1. XL184 [Suspect]
     Indication: PROSTATE CANCER
     Dosage: 60 MG, QD
     Route: 048
     Dates: start: 20130516, end: 20131230
  2. XL184 [Suspect]
     Indication: PROSTATE CANCER
     Dosage: 5 MG, BID
     Route: 048
     Dates: start: 20130516, end: 20131230
  3. DECAPEPTYL [Concomitant]
  4. MEGESTROL ACETATE [Concomitant]
  5. EUTIROX [Concomitant]
  6. RANITIDINA [Concomitant]
  7. ZOMETA [Concomitant]
  8. SIMVASTATINA [Concomitant]
  9. GABAPENTINA [Concomitant]
  10. AUGMENTINE [Concomitant]

REACTIONS (1)
  - Anal abscess [Recovering/Resolving]
